FAERS Safety Report 10809155 (Version 1)
Quarter: 2015Q1

REPORT INFORMATION
  Report Type: Spontaneous
  Country: US (occurrence: None)
  Receive Date: 20150213
  Receipt Date: 20150213
  Transmission Date: 20150721
  Serious: Yes (Death)
  Sender: FDA-Public Use
  Company Number: None

PATIENT
  Age: 42 Year
  Sex: Male
  Weight: 97.52 kg

DRUGS (6)
  1. HYDROCODONE [Concomitant]
     Active Substance: HYDROCODONE
  2. TUMS [Concomitant]
     Active Substance: CALCIUM CARBONATE
  3. NEXIUM [Concomitant]
     Active Substance: ESOMEPRAZOLE MAGNESIUM
  4. GABAPENTIN 300 MG CAPSULE ASCEND LABORATORIES [Suspect]
     Active Substance: GABAPENTIN
     Indication: PAIN
     Dosage: ONE CAPSULE AT BEDTIME, AT BEDTIME, TAKEN BY MOUTH
     Route: 048
     Dates: start: 2012
  5. MULTIVITAMIN [Concomitant]
     Active Substance: VITAMINS
  6. FIBER CHEWS [Concomitant]

REACTIONS (2)
  - Completed suicide [None]
  - Gun shot wound [None]
